FAERS Safety Report 8506895 (Version 4)
Quarter: 2012Q4

REPORT INFORMATION
  Report Type: 
  Country: US (occurrence: US)
  Receive Date: 20120412
  Receipt Date: 20121001
  Transmission Date: 20130627
  Serious: No
  Sender: FDA-Public Use
  Company Number: US-ASTRAZENECA-2011SE27741

PATIENT
  Age: 63 Year
  Sex: Female

DRUGS (2)
  1. NEXIUM [Suspect]
     Dosage: ONCE DAILY
     Route: 048
  2. NEXIUM [Suspect]
     Dosage: SOMETIMES HAD TO TAKE TWO
     Route: 048

REACTIONS (15)
  - Barrett^s oesophagus [Unknown]
  - Fall [Unknown]
  - Weight increased [Unknown]
  - Dyspepsia [Unknown]
  - Dysphonia [Unknown]
  - Joint injury [Unknown]
  - Mobility decreased [Unknown]
  - Gastrooesophageal reflux disease [Unknown]
  - Limb injury [Unknown]
  - Back injury [Unknown]
  - Stress [Unknown]
  - Injury [Unknown]
  - Drug dose omission [Unknown]
  - Intentional drug misuse [Unknown]
  - Drug effect incomplete [Unknown]
